FAERS Safety Report 7421220-8 (Version None)
Quarter: 2011Q2

REPORT INFORMATION
  Report Type: 
  Country: None (occurrence: None)
  Receive Date: 20110418
  Receipt Date: 20110412
  Transmission Date: 20111010
  Serious: Yes (Hospitalization)
  Sender: FDA-Public Use
  Company Number: US-ALEXION-A201100182

PATIENT
  Sex: Female

DRUGS (8)
  1. ANTIHYPERTENSIVES [Suspect]
  2. HYDROCORTISONE [Concomitant]
     Indication: ADDISON'S DISEASE
     Dosage: UNK
  3. THYROID [Concomitant]
     Dosage: UNK
  4. FOSAMAX [Concomitant]
     Indication: BONE DISORDER
     Dosage: UNK
  5. SOLIRIS [Suspect]
     Indication: PAROXYSMAL NOCTURNAL HAEMOGLOBINURIA
     Dosage: UNK
     Route: 042
  6. ANTIDEPRESSANTS [Concomitant]
     Dosage: UNK
  7. FORANEB [Concomitant]
     Indication: ADDISON'S DISEASE
     Dosage: UNK
  8. FOLIC ACID [Concomitant]
     Indication: PAROXYSMAL NOCTURNAL HAEMOGLOBINURIA
     Dosage: UNK

REACTIONS (2)
  - SYNCOPE [None]
  - ANKLE FRACTURE [None]
